FAERS Safety Report 9475190 (Version 1)
Quarter: 2013Q3

REPORT INFORMATION
  Report Type: Spontaneous
  Country: NL (occurrence: None)
  Receive Date: 20130820
  Receipt Date: 20130820
  Transmission Date: 20140515
  Serious: Yes (Hospitalization)
  Sender: FDA-Public Use
  Company Number: VAL_02688_2013

PATIENT
  Age: 61 Year
  Sex: Female
  Weight: 73.6 kg

DRUGS (2)
  1. METOPROLOL [Suspect]
     Indication: CARDIAC FAILURE
     Dosage: (50 MG , REGIMINE #2)
     Route: 048
     Dates: start: 20100413, end: 20120512
  2. ENALAPRIL [Suspect]
     Indication: CARDIAC FAILURE CHRONIC
     Dosage: DF CODE NOT BROKEN ORAL
     Dates: start: 20101118

REACTIONS (3)
  - Palpitations [None]
  - Sinus bradycardia [None]
  - Pneumothorax [None]
